FAERS Safety Report 10332405 (Version 1)
Quarter: 2014Q3

REPORT INFORMATION
  Report Type: Spontaneous
  Country: US (occurrence: US)
  Receive Date: 20140722
  Receipt Date: 20140722
  Transmission Date: 20150326
  Serious: No
  Sender: FDA-Public Use
  Company Number: US-ASTRAZENECA-2013SE64858

PATIENT

DRUGS (6)
  1. PRISTIQ EXTENDED RELEASE [Concomitant]
     Active Substance: DESVENLAFAXINE SUCCINATE
  2. ABILIFY [Concomitant]
     Active Substance: ARIPIPRAZOLE
  3. REMERON [Concomitant]
     Active Substance: MIRTAZAPINE
  4. KLONOPIN [Concomitant]
     Active Substance: CLONAZEPAM
  5. CELEXA [Concomitant]
     Active Substance: CITALOPRAM HYDROBROMIDE
  6. SEROQUEL XR [Suspect]
     Active Substance: QUETIAPINE FUMARATE
     Route: 048

REACTIONS (2)
  - Drug hypersensitivity [Unknown]
  - Mental disorder [Unknown]
